FAERS Safety Report 4781260-4 (Version None)
Quarter: 2005Q3

REPORT INFORMATION
  Report Type: 
  Country: None (occurrence: None)
  Receive Date: 20050928
  Receipt Date: 20050622
  Transmission Date: 20060218
  Serious: Yes (Death, Life-Threatening)
  Sender: FDA-Public Use
  Company Number: NL-GLAXOSMITHKLINE-B0385843A

PATIENT
  Age: 59 Year
  Sex: Female
  Weight: 53 kg

DRUGS (2)
  1. AVANDIA [Suspect]
     Dates: start: 20030911
  2. TOLBUTAMIDE [Concomitant]
     Indication: DRUG USE FOR UNKNOWN INDICATION
     Dates: start: 20030328

REACTIONS (1)
  - CEREBRAL HAEMORRHAGE [None]
